FAERS Safety Report 9834651 (Version 2)
Quarter: 2014Q2

REPORT INFORMATION
  Report Type: Spontaneous
  Country: US (occurrence: US)
  Receive Date: 20140122
  Receipt Date: 20140522
  Transmission Date: 20141212
  Serious: Yes (Congenital Anomaly, Other)
  Sender: FDA-Public Use
  Company Number: US-PFIZER INC-2014017004

PATIENT
  Sex: Male

DRUGS (2)
  1. ZOLOFT [Suspect]
     Dosage: UNK
     Route: 064
     Dates: start: 201106, end: 201109
  2. SERTRALINE HCL [Suspect]
     Dosage: UNK
     Route: 064
     Dates: start: 201106, end: 201109

REACTIONS (6)
  - Maternal exposure during pregnancy [Unknown]
  - Gastroschisis [Unknown]
  - Heart disease congenital [Unknown]
  - Spine malformation [Unknown]
  - Hypospadias [Unknown]
  - Premature baby [Unknown]
